FAERS Safety Report 20790391 (Version 1)
Quarter: 2022Q2

REPORT INFORMATION
  Report Type: Spontaneous
  Country: US (occurrence: None)
  Receive Date: 20220505
  Receipt Date: 20220505
  Transmission Date: 20220721
  Serious: No
  Sender: FDA-Public Use
  Company Number: None

PATIENT

DRUGS (2)
  1. CARVEDILOL [Suspect]
     Active Substance: CARVEDILOL
  2. METOPROLOL TARTRATE [Suspect]
     Active Substance: METOPROLOL TARTRATE

REACTIONS (3)
  - Product prescribing error [None]
  - Duplicate therapy error [None]
  - Product dispensing error [None]
